FAERS Safety Report 26085016 (Version 1)
Quarter: 2025Q4

REPORT INFORMATION
  Report Type: Report from Study
  Country: US (occurrence: US)
  Receive Date: 20251125
  Receipt Date: 20251125
  Transmission Date: 20260118
  Serious: Yes (Other)
  Sender: ABBVIE
  Company Number: US-ABBVIE-6559637

PATIENT
  Sex: Male

DRUGS (1)
  1. SKYRIZI [Suspect]
     Active Substance: RISANKIZUMAB-RZAA
     Indication: Crohn^s disease
     Dosage: FORM STRENGTH: 180 MG
     Route: 058

REACTIONS (5)
  - Intestinal operation [Unknown]
  - Illness [Unknown]
  - Inflammation [Unknown]
  - Needle issue [Not Recovered/Not Resolved]
  - Device leakage [Not Recovered/Not Resolved]
